FAERS Safety Report 7363153-1 (Version None)
Quarter: 2011Q1

REPORT INFORMATION
  Report Type: 
  Country: None (occurrence: None)
  Receive Date: 20110321
  Receipt Date: 20110218
  Transmission Date: 20110831
  Serious: Yes (Death, Other)
  Sender: FDA-Public Use
  Company Number: US-BAYER-200912792NA

PATIENT
  Sex: Male
  Weight: 82 kg

DRUGS (17)
  1. OXYGEN [Concomitant]
  2. DOBUTAMINE [Concomitant]
     Dosage: UNK
     Route: 042
     Dates: start: 20011023, end: 20011023
  3. VANCOMYCIN [Concomitant]
     Dosage: 1000 MG, UNK
     Route: 042
     Dates: start: 20011023, end: 20011023
  4. TRASYLOL [Suspect]
     Indication: CORONARY ARTERY BYPASS
     Dosage: 2000000 KIU, UNK
     Route: 042
     Dates: start: 20011023, end: 20011023
  5. LASIX [Concomitant]
     Dosage: 400 MG, UNK
     Route: 042
  6. PLATELETS [Concomitant]
     Dosage: 2 U, UNK
     Route: 042
     Dates: start: 20011023
  7. DOPAMINE [Concomitant]
     Route: 042
  8. MIDAZOLAM [Concomitant]
     Dosage: UNK
     Route: 042
     Dates: start: 20011023, end: 20011023
  9. PROTAMINE SULFATE [Concomitant]
     Dosage: UNK
     Route: 042
     Dates: start: 20011023, end: 20011023
  10. HEPARIN SODIUM [Concomitant]
     Dosage: UNK
     Route: 042
     Dates: start: 20011023, end: 20011023
  11. CEFUROXIME [Concomitant]
     Dosage: UNK
     Route: 042
     Dates: start: 20011023, end: 20011023
  12. NOREPINEPHRINE BITARTRATE [Concomitant]
     Dosage: UNK
     Route: 042
     Dates: start: 20011023, end: 20011023
  13. RED BLOOD CELLS [Concomitant]
     Dosage: 3 U, UNK
     Route: 042
     Dates: start: 20011023
  14. CONTRAST MEDIA [Concomitant]
     Indication: CATHETERISATION CARDIAC
     Dosage: UNK
     Dates: start: 20011021
  15. AMIODARONE HCL [Concomitant]
     Dosage: UNK
     Route: 042
  16. KETAMINE HCL [Concomitant]
     Dosage: UNK
     Route: 042
     Dates: start: 20011023, end: 20011023
  17. FRESH FROZEN PLASMA [Concomitant]
     Dosage: 1 U, UNK
     Route: 042
     Dates: start: 20011023

REACTIONS (5)
  - INJURY [None]
  - RENAL FAILURE ACUTE [None]
  - UNEVALUABLE EVENT [None]
  - PAIN [None]
  - RENAL FAILURE [None]
